FAERS Safety Report 4799392-3 (Version None)
Quarter: 2005Q4

REPORT INFORMATION
  Report Type: 
  Country: None (occurrence: None)
  Receive Date: 20051013
  Receipt Date: 20050928
  Transmission Date: 20060501
  Serious: Yes (Life-Threatening)
  Sender: FDA-Public Use
  Company Number: 2005134591

PATIENT
  Age: 75 Year
  Sex: Male

DRUGS (6)
  1. NIFEDIPINE [Suspect]
     Indication: HYPERTENSION
     Dosage: 60 MG (DAILY), ORAL
     Route: 048
  2. ASPIRIN [Suspect]
     Indication: ILL-DEFINED DISORDER
     Dosage: 100 MG (DAILY), ORAL
     Route: 048
     Dates: start: 20041101, end: 20050727
  3. COLEMIN (SIMVASTATIN) [Concomitant]
  4. SALIDUR (FUROSEMIDE XANTINOL, TRIAMTERENE) [Concomitant]
  5. MICARDIS [Concomitant]
  6. LEVOFLOXACIN [Concomitant]

REACTIONS (2)
  - DRUG INTERACTION [None]
  - GASTROINTESTINAL HAEMORRHAGE [None]
